FAERS Safety Report 10409660 (Version 1)
Quarter: 2014Q2

REPORT INFORMATION
  Report Type: Spontaneous
  Country: US (occurrence: None)
  Receive Date: 20140604
  Receipt Date: 20140604
  Transmission Date: 20141212
  Serious: No
  Sender: FDA-Public Use
  Company Number: 163-POMAL-14051038

PATIENT
  Age: 57 Year
  Sex: Female

DRUGS (1)
  1. POMALYST (POMALIDOMIDE) (CAPSULES) [Suspect]
     Indication: PLASMA CELL MYELOMA
     Route: 048
     Dates: start: 20140327

REACTIONS (3)
  - Gait disturbance [None]
  - Influenza like illness [None]
  - Dizziness [None]
